FAERS Safety Report 8108803-7 (Version None)
Quarter: 2012Q1

REPORT INFORMATION
  Report Type: 
  Country: None (occurrence: None)
  Receive Date: 20120202
  Receipt Date: 20120103
  Transmission Date: 20120608
  Serious: No
  Sender: FDA-Public Use
  Company Number: US-AMGEN-USASP2012000231

PATIENT
  Age: 76 Year
  Sex: Female

DRUGS (1)
  1. ENBREL [Suspect]
     Indication: RHEUMATOID ARTHRITIS
     Dosage: 50 MG, UNK (ONCE IN NINE DAYS)
     Dates: start: 20080820

REACTIONS (3)
  - INJECTION SITE ERYTHEMA [None]
  - ABDOMINAL WALL DISORDER [None]
  - INJECTION SITE PRURITUS [None]
